FAERS Safety Report 9871064 (Version 1)
Quarter: 2014Q1

REPORT INFORMATION
  Report Type: Spontaneous
  Country: US (occurrence: US)
  Receive Date: 20140205
  Receipt Date: 20140205
  Transmission Date: 20141002
  Serious: Yes (Other)
  Sender: FDA-Public Use
  Company Number: CHPA2014US002163

PATIENT
  Age: 61 Year
  Sex: Male

DRUGS (3)
  1. THERAFLU WARMING RELIEF NIGHTTIME MULTI-SYMPTOM COLD [Suspect]
     Indication: INFLUENZA
     Dosage: 2 DF,3 SEPARATE DOSES
     Route: 048
     Dates: start: 201312, end: 201312
  2. THERAFLU WARMING RELIEF NIGHTTIME MULTI-SYMPTOM COLD [Suspect]
     Indication: OFF LABEL USE
  3. THERAFLU HOT LIQUID MEDICINE UNKNOWN [Suspect]
     Route: 048

REACTIONS (5)
  - Pneumonia [Not Recovered/Not Resolved]
  - Ageusia [Not Recovered/Not Resolved]
  - Anosmia [Not Recovered/Not Resolved]
  - Therapeutic response unexpected [Unknown]
  - Expired drug administered [Unknown]
